FAERS Safety Report 6978816-7 (Version None)
Quarter: 2010Q3

REPORT INFORMATION
  Report Type: 
  Country: None (occurrence: None)
  Receive Date: 20100913
  Receipt Date: 20100909
  Transmission Date: 20110219
  Serious: Yes (Death)
  Sender: FDA-Public Use
  Company Number: AU-ASTRAZENECA-2010SE38860

PATIENT
  Age: 662 Month
  Sex: Female

DRUGS (2)
  1. SEROQUEL XR [Suspect]
     Indication: MOOD ALTERED
     Route: 048
     Dates: start: 20090727
  2. LEXAPRO [Suspect]
     Indication: DEPRESSION
     Route: 048
     Dates: start: 20090727

REACTIONS (2)
  - COMPLETED SUICIDE [None]
  - OVERDOSE [None]
